FAERS Safety Report 12508951 (Version 1)
Quarter: 2016Q2

REPORT INFORMATION
  Report Type: Spontaneous
  Country: US (occurrence: US)
  Receive Date: 20160629
  Receipt Date: 20160629
  Transmission Date: 20160815
  Serious: No
  Sender: FDA-Public Use
  Company Number: US-WATSON-2016-10878

PATIENT
  Sex: Female

DRUGS (2)
  1. SORIATANE [Suspect]
     Active Substance: ACITRETIN
     Dosage: UNK, 3/WEEK
     Route: 048
     Dates: start: 2015
  2. SORIATANE [Suspect]
     Active Substance: ACITRETIN
     Indication: SKIN DISORDER
     Dosage: UNK (5/WEEK)
     Route: 048

REACTIONS (3)
  - Drug ineffective [Unknown]
  - Rash pruritic [Unknown]
  - Rash [Unknown]
